FAERS Safety Report 8012947-8 (Version None)
Quarter: 2011Q4

REPORT INFORMATION
  Report Type: 
  Country: None (occurrence: None)
  Receive Date: 20111229
  Receipt Date: 20111226
  Transmission Date: 20120403
  Serious: Yes (Other)
  Sender: FDA-Public Use
  Company Number: US-JNJFOC-20070400685

PATIENT
  Sex: Male
  Weight: 78.47 kg

DRUGS (44)
  1. CYTARABINE [Suspect]
     Route: 065
     Dates: start: 20070206
  2. ACTIVAN [Concomitant]
     Dosage: AS NECESSARY
     Route: 042
  3. TRAZODONE HCL [Concomitant]
     Dosage: AS NECESSARY
     Route: 048
  4. VINCRISTINE [Suspect]
     Route: 065
     Dates: end: 20070509
  5. CYTARABINE [Suspect]
     Indication: BURKITT'S LYMPHOMA
     Route: 065
     Dates: end: 20070509
  6. POTASSIUM CHLORIDE [Concomitant]
     Route: 048
  7. RITUXIMAB [Suspect]
     Indication: BURKITT'S LYMPHOMA
     Route: 042
     Dates: start: 20070206
  8. BACTRIM [Concomitant]
     Dosage: MON, WED, FRI
     Route: 048
  9. ZOFRAN [Concomitant]
     Dosage: AS NECESSARY
     Route: 042
  10. OCEAN [Concomitant]
     Dosage: AS NECESSARY, 1 SPRAY IN EACH NOSTRIL
     Route: 045
  11. DOXIL [Suspect]
     Dosage: 40MG/M2
     Route: 042
     Dates: end: 20070509
  12. CYCLOPHOSPHAMIDE [Suspect]
     Route: 065
     Dates: end: 20070509
  13. ETOPOSIDE [Suspect]
     Route: 065
     Dates: end: 20070509
  14. ACYCLOVIR [Concomitant]
     Route: 042
  15. CEFEPIME [Concomitant]
     Route: 042
  16. ANALAPRIL [Concomitant]
     Route: 048
  17. ZOFRAN [Concomitant]
     Dosage: AS NECESSARY
     Route: 048
  18. MAGNESIUM SULFATE [Concomitant]
     Route: 042
  19. ETOPOSIDE [Suspect]
     Indication: BURKITT'S LYMPHOMA
     Route: 065
     Dates: start: 20070206
  20. NEXIUM [Concomitant]
     Dosage: 7AM
     Route: 048
  21. EUCERIN [Concomitant]
     Route: 061
  22. NARCAN [Concomitant]
     Route: 042
  23. POTASSIUM CHLORIDE [Concomitant]
     Route: 042
  24. DOXIL [Suspect]
     Indication: BURKITT'S LYMPHOMA
     Dosage: 40MG/M2
     Route: 042
     Dates: start: 20070206
  25. CYCLOPHOSPHAMIDE [Suspect]
     Indication: BURKITT'S LYMPHOMA
     Route: 065
     Dates: start: 20070206
  26. IFOSFAMIDE [Suspect]
     Route: 065
     Dates: end: 20070509
  27. DEXTROSE [Concomitant]
     Route: 042
  28. ALLOPURINOL [Concomitant]
     Route: 048
  29. LEUCOVORIN CALCIUM [Concomitant]
     Route: 042
  30. METOPROLOL SUCCINATE [Concomitant]
     Route: 048
  31. REGLAN [Concomitant]
     Dosage: AS NECESSARY
     Route: 042
  32. COMPAZINE [Concomitant]
     Dosage: AS NECESSARY
     Route: 042
  33. SODIUM BICARBONATE [Concomitant]
     Route: 042
  34. METHOTREXATE [Suspect]
     Indication: BURKITT'S LYMPHOMA
     Route: 042
     Dates: start: 20070206
  35. IFOSFAMIDE [Suspect]
     Indication: BURKITT'S LYMPHOMA
     Route: 065
     Dates: start: 20070206
  36. VINCRISTINE [Suspect]
     Indication: BURKITT'S LYMPHOMA
     Route: 065
     Dates: start: 20070202
  37. METHOTREXATE [Suspect]
     Route: 042
     Dates: end: 20070509
  38. RITUXIMAB [Suspect]
     Route: 042
     Dates: end: 20070509
  39. DIFLUCAN [Concomitant]
     Route: 042
  40. METHOTREXATE [Concomitant]
     Route: 037
  41. HEPARIN [Concomitant]
     Dosage: 100 UNITS/ML FOR LOCK FLUSH
     Route: 042
  42. COMPAZINE [Concomitant]
     Dosage: AS NECESSARY
     Route: 048
  43. SALIVART [Concomitant]
     Route: 048
  44. AMBIEN [Concomitant]
     Dosage: AS NECESSARY
     Route: 048

REACTIONS (3)
  - LEUKOPENIA [None]
  - THROMBOCYTOPENIA [None]
  - LEFT VENTRICULAR DYSFUNCTION [None]
